FAERS Safety Report 24845299 (Version 2)
Quarter: 2025Q1

REPORT INFORMATION
  Report Type: Spontaneous
  Country: US (occurrence: US)
  Receive Date: 20250115
  Receipt Date: 20250123
  Transmission Date: 20250408
  Serious: Yes (Other)
  Sender: pharmaAND
  Company Number: US-Pharmaand-2024001360

PATIENT
  Sex: Male

DRUGS (1)
  1. RUBRACA [Suspect]
     Active Substance: RUCAPARIB CAMSYLATE
     Indication: Prostate cancer
     Dosage: TWO TABLETS BY MOUTH DAILY.
     Route: 048
     Dates: end: 202412

REACTIONS (3)
  - Metastases to bone [Unknown]
  - Drug ineffective [Recovered/Resolved]
  - Pain in extremity [Unknown]
